FAERS Safety Report 8672023 (Version 2)
Quarter: 2013Q1

REPORT INFORMATION
  Report Type: Spontaneous
  Country: NL (occurrence: NL)
  Receive Date: 20120719
  Receipt Date: 20130117
  Transmission Date: 20140127
  Serious: Yes (Other)
  Sender: FDA-Public Use
  Company Number: NL-AMGEN-NLDSP2012043171

PATIENT
  Age: 60 Year
  Sex: Male

DRUGS (3)
  1. ENBREL [Suspect]
     Indication: PSORIATIC ARTHROPATHY
     Dosage: 50 MG, WEEKLY
     Dates: start: 2009
  2. OMEPRAZOL                          /00661201/ [Concomitant]
     Dosage: UNK
  3. PROSTAMED                          /01018101/ [Concomitant]
     Dosage: UNK

REACTIONS (2)
  - Psoriatic arthropathy [Not Recovered/Not Resolved]
  - Drug ineffective [Not Recovered/Not Resolved]
